FAERS Safety Report 24225898 (Version 1)
Quarter: 2024Q3

REPORT INFORMATION
  Report Type: Spontaneous
  Country: CA (occurrence: CA)
  Receive Date: 20240820
  Receipt Date: 20240820
  Transmission Date: 20241016
  Serious: Yes (Death)
  Sender: CHEPLAPHARM
  Company Number: CA-ROCHE-10000052460

PATIENT
  Age: 30 Year
  Sex: Male
  Weight: 84 kg

DRUGS (11)
  1. CLONAZEPAM [Suspect]
     Active Substance: CLONAZEPAM
  2. DIAZEPAM [Suspect]
     Active Substance: DIAZEPAM
  3. METHYLPHENIDATE [Suspect]
     Active Substance: METHYLPHENIDATE
  4. BENZOYLECGONINE [Suspect]
     Active Substance: BENZOYLECGONINE
  5. DRONABINOL [Suspect]
     Active Substance: DRONABINOL
  6. NAPROXEN [Suspect]
     Active Substance: NAPROXEN
  7. NORTRIPTYLINE [Suspect]
     Active Substance: NORTRIPTYLINE
  8. OXAZEPAM [Suspect]
     Active Substance: OXAZEPAM
  9. PREGABALIN [Suspect]
     Active Substance: PREGABALIN
  10. TEMAZEPAM [Suspect]
     Active Substance: TEMAZEPAM
  11. OXYCODONE HYDROCHLORIDE [Suspect]
     Active Substance: OXYCODONE HYDROCHLORIDE

REACTIONS (6)
  - Arteriosclerosis coronary artery [Fatal]
  - Cardio-respiratory arrest [Fatal]
  - Drug abuse [Fatal]
  - Drug dependence [Fatal]
  - Overdose [Fatal]
  - Toxicity to various agents [Fatal]
